FAERS Safety Report 5753662-0 (Version None)
Quarter: 2008Q2

REPORT INFORMATION
  Report Type: 
  Country: None (occurrence: None)
  Receive Date: 20080530
  Receipt Date: 20080522
  Transmission Date: 20081010
  Serious: Yes (Other)
  Sender: FDA-Public Use
  Company Number: AU-ABBOTT-08P-008-0453013-00

PATIENT
  Age: 31 Year
  Sex: Male
  Weight: 120 kg

DRUGS (1)
  1. REDUCTIL [Suspect]
     Indication: OBESITY
     Dates: start: 20070315, end: 20070515

REACTIONS (1)
  - TYPE 2 DIABETES MELLITUS [None]
